FAERS Safety Report 17147442 (Version 3)
Quarter: 2020Q3

REPORT INFORMATION
  Report Type: Spontaneous
  Country: JP (occurrence: JP)
  Receive Date: 20191212
  Receipt Date: 20200914
  Transmission Date: 20201102
  Serious: Yes (Death, Hospitalization, Other)
  Sender: FDA-Public Use
  Company Number: JP-AMGEN-JPNSP2019206172

PATIENT
  Age: 98 Year
  Sex: Female
  Weight: 36 kg

DRUGS (6)
  1. FEBURIC [Concomitant]
     Active Substance: FEBUXOSTAT
     Indication: HYPERURICAEMIA
     Dosage: 10 MILLIGRAM, QD
  2. SAMSCA [Concomitant]
     Active Substance: TOLVAPTAN
     Indication: CARDIAC FAILURE CHRONIC
  3. CALONAL [Concomitant]
     Active Substance: ACETAMINOPHEN
     Indication: LUMBAR VERTEBRAL FRACTURE
     Dosage: 400 MILLIGRAM, BID
     Route: 065
  4. NEUROTROPIN [RABBIT VACCINIA EXTRACT] [Concomitant]
     Active Substance: ORYCTOLAGUS CUNICULUS SKIN
     Indication: LUMBAR VERTEBRAL FRACTURE
     Dosage: 8 INTERNATIONAL UNIT, BID
     Route: 065
  5. SAMSCA [Concomitant]
     Active Substance: TOLVAPTAN
     Indication: CHRONIC KIDNEY DISEASE
     Dosage: 0.75 UNK, QD
  6. EVENITY [Suspect]
     Active Substance: ROMOSOZUMAB-AQQG
     Indication: OSTEOPOROSIS
     Dosage: 210 MILLIGRAM, QMO
     Route: 058
     Dates: start: 20190417, end: 20191023

REACTIONS (4)
  - Hypernatraemia [Fatal]
  - Dehydration [Fatal]
  - Cardiac failure chronic [Fatal]
  - Cardio-respiratory arrest [Fatal]

NARRATIVE: CASE EVENT DATE: 20191111
